FAERS Safety Report 23205686 (Version 2)
Quarter: 2023Q4

REPORT INFORMATION
  Report Type: Report from Study
  Country: US (occurrence: US)
  Receive Date: 20231120
  Receipt Date: 20231130
  Transmission Date: 20240110
  Serious: Yes (Death, Hospitalization)
  Sender: FDA-Public Use
  Company Number: US-EXELIXIS-CABO-23070406

PATIENT
  Age: 79 Year
  Sex: Male

DRUGS (10)
  1. CABOMETYX [Suspect]
     Active Substance: CABOZANTINIB S-MALATE
     Indication: Hepatocellular carcinoma
     Dosage: 20 MG
     Dates: start: 20231018
  2. CABOMETYX [Suspect]
     Active Substance: CABOZANTINIB S-MALATE
     Dosage: 40 MG
     Dates: start: 20231024
  3. CABOMETYX [Suspect]
     Active Substance: CABOZANTINIB S-MALATE
     Dosage: 60 MG
     Dates: start: 20231031
  4. CABOMETYX [Suspect]
     Active Substance: CABOZANTINIB S-MALATE
     Dosage: 20 MG
     Dates: end: 20231106
  5. CIPROFLOXACIN [Concomitant]
     Active Substance: CIPROFLOXACIN
  6. FUROSEMIDE [Concomitant]
     Active Substance: FUROSEMIDE
  7. GLIPIZIDE [Concomitant]
     Active Substance: GLIPIZIDE
  8. SPIRONOLACTONE [Concomitant]
     Active Substance: SPIRONOLACTONE
  9. LACTULOSE [Concomitant]
     Active Substance: LACTULOSE
  10. DEXAMETHASONE [Concomitant]
     Active Substance: DEXAMETHASONE

REACTIONS (6)
  - Adverse drug reaction [Unknown]
  - Death [Fatal]
  - Gait disturbance [Unknown]
  - Haemorrhoidal haemorrhage [Unknown]
  - Weight decreased [Not Recovered/Not Resolved]
  - Off label use [Unknown]

NARRATIVE: CASE EVENT DATE: 20231125
